FAERS Safety Report 23090324 (Version 2)
Quarter: 2023Q4

REPORT INFORMATION
  Report Type: Spontaneous
  Country: US (occurrence: US)
  Receive Date: 20231020
  Receipt Date: 20231117
  Transmission Date: 20240110
  Serious: Yes (Hospitalization, Other)
  Sender: FDA-Public Use
  Company Number: US-BAXTER-2023BAX033332

PATIENT
  Age: 62 Year
  Sex: Male
  Weight: 192 kg

DRUGS (8)
  1. VANCOMYCIN [Suspect]
     Active Substance: VANCOMYCIN
     Indication: Peritonitis
     Dosage: UNSPECIFIED DOSE, EVERY FIVE DAYS
     Route: 065
  2. CEFAZOLIN [Suspect]
     Active Substance: CEFAZOLIN
     Indication: Evidence based treatment
     Dosage: 1400 MG IP, UNSPECIFIED FREQUENCY.
     Route: 033
     Dates: start: 20230728, end: 20230817
  3. FORTAZ [Suspect]
     Active Substance: CEFTAZIDIME SODIUM
     Indication: Peritonitis
     Dosage: 1 GRAM IP, NCEF FORTAZ, UNSPECIFIED FREQUENCY
     Route: 033
     Dates: start: 20230728, end: 20230817
  4. FORTAZ [Suspect]
     Active Substance: CEFTAZIDIME SODIUM
     Indication: Evidence based treatment
  5. DIFLUCAN [Suspect]
     Active Substance: FLUCONAZOLE
     Indication: Peritonitis
     Dosage: 200 MG, QOD
     Route: 048
     Dates: start: 20230901, end: 20231001
  6. ANCEF [Suspect]
     Active Substance: CEFAZOLIN SODIUM
     Dosage: 1400 MG, QD IP (UNTIL HOSPITALIZED)
     Route: 033
  7. CIPROFLOXACIN [Suspect]
     Active Substance: CIPROFLOXACIN
     Indication: Peritonitis
     Dosage: 500 MILLIGRAMS (MG), UNSPECIFIED FREQUENCY
     Route: 048
     Dates: start: 20230803, end: 20230817
  8. CIPROFLOXACIN [Suspect]
     Active Substance: CIPROFLOXACIN
     Indication: Evidence based treatment

REACTIONS (3)
  - Fungal peritonitis [Recovered/Resolved]
  - Peritoneal cloudy effluent [Recovered/Resolved]
  - Abdominal pain [Recovered/Resolved]

NARRATIVE: CASE EVENT DATE: 20230903
